FAERS Safety Report 12106688 (Version 1)
Quarter: 2016Q1

REPORT INFORMATION
  Report Type: Spontaneous
  Country: FR (occurrence: FR)
  Receive Date: 20160223
  Receipt Date: 20160223
  Transmission Date: 20160526
  Serious: Yes (Hospitalization)
  Sender: FDA-Public Use
  Company Number: FR-CONCORDIA PHARMACEUTICALS INC.-CO-UX-FR-2016-007

PATIENT
  Age: 78 Year
  Sex: Male

DRUGS (14)
  1. ALLOPURINOL. [Concomitant]
     Active Substance: ALLOPURINOL
  2. GALVUS [Concomitant]
     Active Substance: VILDAGLIPTIN
  3. LASILIX [Concomitant]
     Active Substance: FUROSEMIDE
  4. DIFFU K [Concomitant]
     Active Substance: POTASSIUM CHLORIDE
  5. EUPRESSYL [Concomitant]
     Active Substance: URAPIDIL
  6. MICARDIS [Concomitant]
     Active Substance: TELMISARTAN
  7. ELISOR [Concomitant]
     Active Substance: PRAVASTATIN SODIUM
  8. MIDAZOLAM [Suspect]
     Active Substance: MIDAZOLAM\MIDAZOLAM HYDROCHLORIDE
     Indication: PRODUCT USED FOR UNKNOWN INDICATION
     Route: 042
     Dates: start: 20160118, end: 20160118
  9. LOXEN [Concomitant]
     Active Substance: NICARDIPINE HYDROCHLORIDE
  10. PREVISCAN [Concomitant]
     Active Substance: FLUINDIONE
  11. ALFUZOSIN HYDROCHLORIDE. [Suspect]
     Active Substance: ALFUZOSIN HYDROCHLORIDE
     Indication: PRODUCT USED FOR UNKNOWN INDICATION
     Route: 065
  12. LYRICA [Concomitant]
     Active Substance: PREGABALIN
  13. MACROGOL [Concomitant]
     Active Substance: POLYETHYLENE GLYCOLS
  14. NOVONORM [Concomitant]
     Active Substance: REPAGLINIDE

REACTIONS (1)
  - Somnolence [None]

NARRATIVE: CASE EVENT DATE: 20160118
